FAERS Safety Report 12234348 (Version 1)
Quarter: 2016Q2

REPORT INFORMATION
  Report Type: Spontaneous
  Country: US (occurrence: None)
  Receive Date: 20160401
  Receipt Date: 20160401
  Transmission Date: 20160815
  Serious: Yes (Other)
  Sender: FDA-Public Use
  Company Number: None

PATIENT
  Age: 60 Year
  Sex: Female

DRUGS (1)
  1. COPAXONE [Suspect]
     Active Substance: GLATIRAMER ACETATE
     Indication: MULTIPLE SCLEROSIS
     Dosage: 40MG THREE TIMES WEEKLY
     Route: 058
     Dates: start: 20151230, end: 20160106

REACTIONS (6)
  - Decreased appetite [None]
  - Pyrexia [None]
  - Chills [None]
  - Influenza like illness [None]
  - Speech disorder [None]
  - Gait disturbance [None]

NARRATIVE: CASE EVENT DATE: 20151230
